FAERS Safety Report 17515778 (Version 1)
Quarter: 2020Q1

REPORT INFORMATION
  Report Type: Spontaneous
  Country: CN (occurrence: CN)
  Receive Date: 20200309
  Receipt Date: 20200309
  Transmission Date: 20200409
  Serious: Yes (Life-Threatening, Hospitalization, Other)
  Sender: FDA-Public Use
  Company Number: CN-AXELLIA-003018

PATIENT
  Age: 85 Year
  Sex: Male

DRUGS (8)
  1. CIPROFLOXACIN. [Suspect]
     Active Substance: CIPROFLOXACIN
     Indication: ANTIBIOTIC THERAPY
  2. MEROPENEM. [Suspect]
     Active Substance: MEROPENEM
     Indication: ANTIBIOTIC THERAPY
  3. MOXIFLOXACIN/MOXIFLOXACIN HYDROCHLORIDE [Suspect]
     Active Substance: MOXIFLOXACIN
     Indication: ANTIBIOTIC THERAPY
  4. PIPERACILLIN SODIUM/TAZOBACTAM SODIUM [Suspect]
     Active Substance: PIPERACILLIN SODIUM\TAZOBACTAM SODIUM
     Indication: ANTIBIOTIC THERAPY
  5. VANCOMYCIN [Suspect]
     Active Substance: VANCOMYCIN
     Indication: ANTIBIOTIC THERAPY
  6. LINEZOLID. [Suspect]
     Active Substance: LINEZOLID
     Indication: ANTIBIOTIC THERAPY
  7. FLUCONAZOLE. [Suspect]
     Active Substance: FLUCONAZOLE
     Indication: ANTIFUNGAL TREATMENT
     Dosage: LONG TERM
  8. ETIMICIN [Suspect]
     Active Substance: ETIMICIN SULFATE
     Indication: ANTIBIOTIC THERAPY

REACTIONS (11)
  - Multiple organ dysfunction syndrome [Recovering/Resolving]
  - Stenotrophomonas test positive [Unknown]
  - Cardiac failure [Recovering/Resolving]
  - Renal impairment [Recovered/Resolved]
  - Pseudomonas test positive [Unknown]
  - Deep vein thrombosis [Unknown]
  - Fungal infection [Recovering/Resolving]
  - Pneumonia fungal [Recovering/Resolving]
  - Gastrointestinal haemorrhage [Unknown]
  - Hepatic failure [Recovered/Resolved]
  - Respiratory failure [Recovering/Resolving]
